FAERS Safety Report 23080682 (Version 1)
Quarter: 2023Q4

REPORT INFORMATION
  Report Type: Spontaneous
  Country: US (occurrence: None)
  Receive Date: 20231018
  Receipt Date: 20231018
  Transmission Date: 20240110
  Serious: Yes (Hospitalization)
  Sender: FDA-Public Use
  Company Number: None

PATIENT
  Age: 88 Year
  Sex: Male
  Weight: 94.8 kg

DRUGS (2)
  1. DULOXETINE [Suspect]
     Active Substance: DULOXETINE
     Dosage: FREQUENCY : DAILY;?
     Route: 048
     Dates: start: 2022, end: 20220419
  2. TRAMADOL HCL [Suspect]
     Active Substance: TRAMADOL HYDROCHLORIDE
     Dates: start: 20230420

REACTIONS (5)
  - Toxic encephalopathy [None]
  - Confusional state [None]
  - Hallucination [None]
  - Hyponatraemia [None]
  - Blood urea nitrogen/creatinine ratio increased [None]

NARRATIVE: CASE EVENT DATE: 20221019
